FAERS Safety Report 8191795-2 (Version None)
Quarter: 2012Q1

REPORT INFORMATION
  Report Type: 
  Country: None (occurrence: None)
  Receive Date: 20120307
  Receipt Date: 20120305
  Transmission Date: 20120608
  Serious: Yes (Other)
  Sender: FDA-Public Use
  Company Number: FR-PFIZER INC-2012057671

PATIENT
  Age: 52 Year
  Sex: Female

DRUGS (3)
  1. FEC [Concomitant]
     Indication: CHEMOTHERAPY
  2. SOLU-MEDROL [Suspect]
     Indication: PREMEDICATION
     Dosage: UNSPECIFIED SINGLE DOSE
     Route: 042
     Dates: start: 20111010, end: 20111010
  3. KYTRIL [Suspect]
     Indication: PREMEDICATION
     Dosage: UNSPECIFIED SINGLE DOSE
     Route: 042
     Dates: start: 20111010, end: 20111010

REACTIONS (1)
  - ANAPHYLACTIC SHOCK [None]
